FAERS Safety Report 4289425-5 (Version None)
Quarter: 2004Q1

REPORT INFORMATION
  Report Type: 
  Country: None (occurrence: None)
  Receive Date: 20040126
  Receipt Date: 20030925
  Transmission Date: 20041129
  Serious: No
  Sender: FDA-Public Use
  Company Number: USA030330873

PATIENT
  Age: 85 Year
  Sex: Female
  Weight: 55 kg

DRUGS (7)
  1. FORTEO [Suspect]
     Indication: OSTEOPOROSIS
     Dosage: 20 UG/DAY
     Dates: start: 20030305
  2. ACCUPRIL [Concomitant]
  3. LIPITOR [Concomitant]
  4. METOPROLOL [Concomitant]
  5. MULTIVITAMIN [Concomitant]
  6. PLAVIX [Concomitant]
  7. PREDNISONE [Concomitant]

REACTIONS (2)
  - INJECTION SITE ERYTHEMA [None]
  - OVERDOSE [None]
